FAERS Safety Report 4479885-9 (Version None)
Quarter: 2004Q3

REPORT INFORMATION
  Report Type: 
  Country: None (occurrence: None)
  Receive Date: 20040923
  Receipt Date: 20040519
  Transmission Date: 20050211
  Serious: No
  Sender: FDA-Public Use
  Company Number: USA040568072

PATIENT
  Age: 77 Year
  Sex: Female

DRUGS (4)
  1. FORTEO [Suspect]
     Indication: OSTEOPOROSIS
     Dosage: 20 UG DAY
     Dates: start: 20040401
  2. COUMADIN [Concomitant]
  3. SPIRONOLACTONE [Concomitant]
  4. OXYGEN [Concomitant]

REACTIONS (1)
  - INJECTION SITE HAEMORRHAGE [None]
